FAERS Safety Report 22712192 (Version 3)
Quarter: 2023Q4

REPORT INFORMATION
  Report Type: Report from Study
  Country: US (occurrence: US)
  Receive Date: 20230717
  Receipt Date: 20231219
  Transmission Date: 20240110
  Serious: Yes (Hospitalization, Other)
  Sender: FDA-Public Use
  Company Number: US-HORIZON THERAPEUTICS-HZN-2023-004739

PATIENT

DRUGS (1)
  1. KRYSTEXXA [Suspect]
     Active Substance: PEGLOTICASE
     Indication: Product used for unknown indication
     Dosage: FIRST INFUSION (SLOWED THE DRIP OF THE INFUSION)
     Route: 042
     Dates: start: 20230619

REACTIONS (19)
  - Cardiac dysfunction [Recovered/Resolved]
  - Loss of consciousness [Recovering/Resolving]
  - Insomnia [Recovered/Resolved]
  - Headache [Recovered/Resolved]
  - Somnolence [Recovering/Resolving]
  - Anger [Recovering/Resolving]
  - Frustration tolerance decreased [Recovering/Resolving]
  - Feeling abnormal [Recovering/Resolving]
  - Back pain [Recovering/Resolving]
  - Cardiac disorder [Recovering/Resolving]
  - Confusional state [Recovering/Resolving]
  - Emotional disorder [Recovering/Resolving]
  - Cholelithiasis [Recovering/Resolving]
  - Pain [Recovering/Resolving]
  - Pain [Recovering/Resolving]
  - Fatigue [Recovering/Resolving]
  - Chest discomfort [Recovered/Resolved]
  - Constipation [Recovered/Resolved]
  - Pain in extremity [Recovering/Resolving]

NARRATIVE: CASE EVENT DATE: 20230101
